FAERS Safety Report 7701370-9 (Version None)
Quarter: 2011Q3

REPORT INFORMATION
  Report Type: 
  Country: None (occurrence: None)
  Receive Date: 20110822
  Receipt Date: 20110809
  Transmission Date: 20111222
  Serious: Yes (Hospitalization)
  Sender: FDA-Public Use
  Company Number: US-CELGENEUS-163-21880-11012039

PATIENT
  Sex: Female
  Weight: 77.18 kg

DRUGS (18)
  1. REVLIMID [Suspect]
     Indication: MULTIPLE MYELOMA
     Dosage: 25 MILLIGRAM
     Route: 048
     Dates: start: 20101210
  2. ALLOPURINOL [Concomitant]
     Dosage: 100 MILLIGRAM
     Route: 048
  3. NORVASC [Concomitant]
     Dosage: 10 MILLIGRAM
     Route: 048
  4. ASPIRIN [Concomitant]
     Route: 065
  5. FLUID [Concomitant]
     Route: 041
  6. LASIX [Concomitant]
     Route: 065
  7. POTASSIUM ACETATE [Concomitant]
     Dosage: 99 MILLIGRAM
     Route: 048
  8. DEXAMETHASONE [Concomitant]
     Indication: MULTIPLE MYELOMA
     Dosage: 4 MILLIGRAM
     Route: 048
  9. COMBIGAN [Concomitant]
     Route: 065
  10. COUMADIN [Concomitant]
     Dosage: 2.5 MILLIGRAM
     Route: 048
  11. LEVOXYL [Concomitant]
     Route: 048
  12. VELCADE [Concomitant]
     Route: 065
     Dates: start: 20110301
  13. MANNITOL [Concomitant]
     Route: 065
  14. CALCIUM CARBONATE [Concomitant]
     Dosage: 600MG-125
     Route: 048
  15. LISINOPRIL [Concomitant]
     Dosage: 2.5 MILLIGRAM
     Route: 048
  16. METFORMIN HYDROCHLORIDE [Concomitant]
     Route: 048
  17. MEVACOR [Concomitant]
     Dosage: 20 MILLIGRAM
     Route: 048
  18. ASPIRIN [Concomitant]
     Dosage: 81 MILLIGRAM
     Route: 048

REACTIONS (5)
  - WEIGHT DECREASED [None]
  - TUBULOINTERSTITIAL NEPHRITIS [None]
  - LIMB DISCOMFORT [None]
  - HAEMOLYSIS [None]
  - HAEMOGLOBIN DECREASED [None]
